FAERS Safety Report 5818623-1 (Version None)
Quarter: 2008Q3

REPORT INFORMATION
  Report Type: 
  Country: None (occurrence: None)
  Receive Date: 20080723
  Receipt Date: 20080715
  Transmission Date: 20090109
  Serious: Yes (Other)
  Sender: FDA-Public Use
  Company Number: US-ELI_LILLY_AND_COMPANY-US200807003088

PATIENT
  Sex: Male

DRUGS (4)
  1. HUMULIN N [Suspect]
  2. HUMULIN N [Suspect]
  3. HUMULIN R [Suspect]
  4. HUMULIN R [Suspect]

REACTIONS (4)
  - BLOOD GLUCOSE ABNORMAL [None]
  - NEOPLASM MALIGNANT [None]
  - PARALYSIS [None]
  - SPINAL CORD COMPRESSION [None]
